FAERS Safety Report 5081617-0 (Version None)
Quarter: 2006Q3

REPORT INFORMATION
  Report Type: 
  Country: None (occurrence: None)
  Receive Date: 20060810
  Receipt Date: 20060728
  Transmission Date: 20061208
  Serious: Yes (Hospitalization)
  Sender: FDA-Public Use
  Company Number: 2006095884

PATIENT
  Age: 22 Year
  Sex: Female

DRUGS (1)
  1. ATARAX [Suspect]
     Indication: DRUG USE FOR UNKNOWN INDICATION
     Dosage: 1 DOSAGE FORM, ORAL
     Route: 048
     Dates: start: 20060605, end: 20060615

REACTIONS (2)
  - HYPERTHERMIA MALIGNANT [None]
  - SINUS TACHYCARDIA [None]
